FAERS Safety Report 8408753-2 (Version None)
Quarter: 2012Q2

REPORT INFORMATION
  Report Type: 
  Country: None (occurrence: None)
  Receive Date: 20120604
  Receipt Date: 20120531
  Transmission Date: 20120825
  Serious: Yes (Other)
  Sender: FDA-Public Use
  Company Number: PHHY2012DE047029

PATIENT
  Sex: Male
  Weight: 75 kg

DRUGS (7)
  1. MYDOCALM [Concomitant]
     Dosage: 100 MG, TID
     Route: 048
     Dates: start: 20120510, end: 20120529
  2. CLOBAZAM [Concomitant]
     Dosage: 10 MG, PRN
     Dates: start: 20001001
  3. PK-MERZ [Concomitant]
     Dosage: 300 MG, UNK
     Dates: start: 20000901
  4. LAMICTAL [Concomitant]
     Dosage: 300 MG, UNK
     Dates: start: 19980801
  5. GILENYA [Suspect]
     Indication: MULTIPLE SCLEROSIS
     Dosage: 0.5 MG, QD
     Route: 048
     Dates: start: 20120112
  6. IBUPROFEN [Concomitant]
     Dosage: 600 MG, PRN
     Dates: start: 20101101
  7. KEPPRA [Concomitant]
     Dosage: 2000 MG, UNK
     Dates: start: 20010601

REACTIONS (6)
  - FALL [None]
  - IMPAIRED HEALING [None]
  - GAMMA-GLUTAMYLTRANSFERASE INCREASED [None]
  - ALANINE AMINOTRANSFERASE INCREASED [None]
  - LEUKOPENIA [None]
  - SKIN LESION [None]
